FAERS Safety Report 8350264-7 (Version None)
Quarter: 2012Q2

REPORT INFORMATION
  Report Type: 
  Country: None (occurrence: None)
  Receive Date: 20120510
  Receipt Date: 20120502
  Transmission Date: 20120825
  Serious: Yes (Other)
  Sender: FDA-Public Use
  Company Number: FR-ROCHE-1061566

PATIENT
  Sex: Female

DRUGS (5)
  1. ALBUTEROL [Concomitant]
  2. SINGULAIR [Concomitant]
  3. FLUTICASONE PROPIONATE/SALMETEROL [Concomitant]
     Dosage: DOSE: 500/50 MICROGRAM
  4. XOLAIR [Suspect]
     Indication: ASTHMA
     Route: 058
     Dates: start: 20101001, end: 20120201
  5. EBASTINE [Concomitant]

REACTIONS (3)
  - HAEMATOMA [None]
  - MYALGIA [None]
  - ARTHRALGIA [None]
